FAERS Safety Report 9929125 (Version 1)
Quarter: 2014Q1

REPORT INFORMATION
  Report Type: Spontaneous
  Country: AU (occurrence: None)
  Receive Date: 20140225
  Receipt Date: 20140225
  Transmission Date: 20141002
  Serious: Yes (Hospitalization)
  Sender: FDA-Public Use
  Company Number: 2013000526

PATIENT
  Age: 67 Year
  Sex: Male

DRUGS (4)
  1. ACEON [Suspect]
     Indication: HYPERTENSION
     Route: 048
     Dates: start: 20010207, end: 20010211
  2. PRAVACHOL ( PRAVASTATIN SODIUM) [Concomitant]
  3. DIAFORMIN ( METFORMIN HYDROCHLORIDE) [Concomitant]
  4. ACETYLSALICYLIC ACID ( ACETYLSALICYLIC ACID) [Concomitant]

REACTIONS (3)
  - Dysphagia [None]
  - Pharyngitis [None]
  - Angioedema [None]
